FAERS Safety Report 14276287 (Version 2)
Quarter: 2018Q1

REPORT INFORMATION
  Report Type: Report from Study
  Country: FR (occurrence: FR)
  Receive Date: 20171212
  Receipt Date: 20180118
  Transmission Date: 20180508
  Serious: Yes (Death, Other)
  Sender: FDA-Public Use
  Company Number: FR-ROCHE-2032943

PATIENT
  Age: 69 Year
  Sex: Female
  Weight: 77 kg

DRUGS (9)
  1. BEVACIZUMAB. [Suspect]
     Active Substance: BEVACIZUMAB
     Dosage: CYCLE 2
     Route: 042
     Dates: start: 20161108
  2. FU [Suspect]
     Active Substance: FLUOROURACIL
     Indication: COLORECTAL CANCER METASTATIC
     Route: 040
     Dates: start: 20161011
  3. FU [Suspect]
     Active Substance: FLUOROURACIL
     Dosage: CYCLE 3
     Route: 042
     Dates: start: 20161110
  4. ELVORINE [Suspect]
     Active Substance: LEUCOVORIN CALCIUM
     Route: 065
     Dates: start: 20161108
  5. BEVACIZUMAB. [Suspect]
     Active Substance: BEVACIZUMAB
     Indication: COLORECTAL CANCER METASTATIC
     Route: 042
     Dates: start: 20161025
  6. FU [Suspect]
     Active Substance: FLUOROURACIL
     Dosage: 700 ?CYCLE 3
     Route: 040
     Dates: start: 20161108
  7. FU [Suspect]
     Active Substance: FLUOROURACIL
     Route: 042
     Dates: start: 20161011
  8. ELVORINE [Suspect]
     Active Substance: LEUCOVORIN CALCIUM
     Indication: COLORECTAL CANCER METASTATIC
     Route: 065
     Dates: start: 20161011
  9. IRINOTECAN [Concomitant]
     Active Substance: IRINOTECAN
     Dosage: CYCLE 3
     Route: 065
     Dates: start: 20161108

REACTIONS (5)
  - Epistaxis [Recovered/Resolved]
  - Death [Fatal]
  - Hypertension [Recovered/Resolved]
  - Hypertensive crisis [Recovered/Resolved]
  - Headache [Recovered/Resolved]

NARRATIVE: CASE EVENT DATE: 20161108
